FAERS Safety Report 13064237 (Version 1)
Quarter: 2016Q4

REPORT INFORMATION
  Report Type: Spontaneous
  Country: US (occurrence: US)
  Receive Date: 20161223
  Receipt Date: 20161223
  Transmission Date: 20170207
  Serious: Yes (Life-Threatening, Other)
  Sender: FDA-Public Use
  Company Number: None

PATIENT
  Age: 52 Year
  Sex: Female
  Weight: 60.75 kg

DRUGS (1)
  1. GABAPENTIN. [Suspect]
     Active Substance: GABAPENTIN
     Indication: NEURALGIA
     Dosage: QUANTITY:1 CAPSULE(S); TWICE A DAY; ORAL?
     Route: 048
     Dates: start: 20161119, end: 20161223

REACTIONS (7)
  - Multiple injuries [None]
  - Tremor [None]
  - Concussion [None]
  - Asthenia [None]
  - Fall [None]
  - Disorientation [None]
  - Suicidal ideation [None]

NARRATIVE: CASE EVENT DATE: 20161220
